FAERS Safety Report 4576071-9 (Version None)
Quarter: 2005Q1

REPORT INFORMATION
  Report Type: 
  Country: None (occurrence: None)
  Receive Date: 20050209
  Receipt Date: 20041025
  Transmission Date: 20050727
  Serious: Yes (Life-Threatening, Hospitalization)
  Sender: FDA-Public Use
  Company Number: PHBS2004JP14260

PATIENT
  Age: 76 Year
  Sex: Male
  Weight: 60 kg

DRUGS (4)
  1. SOLU-MEDROL [Concomitant]
     Dosage: 1 G/D
     Dates: start: 20041013
  2. GASTER [Concomitant]
     Indication: PROPHYLAXIS AGAINST GASTROINTESTINAL ULCER
     Dosage: 40 MG/D
     Dates: start: 20040830, end: 20040830
  3. NEORAL [Suspect]
     Indication: PSORIASIS
     Dosage: 200 MG/D
     Route: 048
     Dates: start: 20040913, end: 20041012
  4. PREDONINE [Concomitant]
     Indication: PSORIASIS
     Dosage: 20 MG/D
     Route: 048
     Dates: start: 20040830, end: 20041012

REACTIONS (6)
  - COMPUTERISED TOMOGRAM ABNORMAL [None]
  - INTERSTITIAL LUNG DISEASE [None]
  - PYREXIA [None]
  - RESPIRATORY FAILURE [None]
  - SEPSIS [None]
  - STAPHYLOCOCCAL INFECTION [None]
